FAERS Safety Report 16852664 (Version 1)
Quarter: 2019Q3

REPORT INFORMATION
  Report Type: Spontaneous
  Country: GB (occurrence: GB)
  Receive Date: 20190925
  Receipt Date: 20190925
  Transmission Date: 20191005
  Serious: Yes (Other)
  Sender: FDA-Public Use
  Company Number: GB-JNJFOC-20190924571

PATIENT
  Age: 72 Year
  Sex: Female
  Weight: 94 kg

DRUGS (11)
  1. SOTALOL. [Concomitant]
     Active Substance: SOTALOL
     Dosage: 1 DF, UNK
     Dates: start: 20181115
  2. PARACETAMOL [Concomitant]
     Active Substance: ACETAMINOPHEN
  3. NEDITOL [Concomitant]
     Active Substance: TOLTERODINE
     Dosage: 1 DF, UNK
     Dates: start: 20190708
  4. RIVAROXABAN [Suspect]
     Active Substance: RIVAROXABAN
     Indication: ATRIAL FIBRILLATION
     Dosage: 1 DF, UNK
     Route: 048
     Dates: start: 20181115
  5. MIRABEGRON [Interacting]
     Active Substance: MIRABEGRON
     Indication: PRODUCT USED FOR UNKNOWN INDICATION
     Dosage: 25 MG, UNK
     Route: 065
     Dates: start: 20190805
  6. EVOREL [Concomitant]
     Dosage: 2 DF, UNK
     Dates: start: 20181115
  7. OMEPRAZOLE. [Concomitant]
     Active Substance: OMEPRAZOLE
     Dosage: 2 DF, UNK
     Dates: start: 20181115
  8. KETOPROFEN. [Concomitant]
     Active Substance: KETOPROFEN
     Dates: start: 20190821
  9. GABAPENTIN. [Concomitant]
     Active Substance: GABAPENTIN
     Dosage: 4 DF, UNK
     Dates: start: 20181115
  10. OXYBUTYNIN. [Concomitant]
     Active Substance: OXYBUTYNIN CHLORIDE
     Indication: BLADDER DISORDER
     Dates: start: 20190517, end: 20190708
  11. CODEINE PHOSPHATE [Concomitant]
     Active Substance: CODEINE PHOSPHATE

REACTIONS (3)
  - Drug interaction [Unknown]
  - Haemoptysis [Recovering/Resolving]
  - Petechiae [Unknown]
